FAERS Safety Report 4430789-7 (Version None)
Quarter: 2004Q3

REPORT INFORMATION
  Report Type: 
  Country: None (occurrence: None)
  Receive Date: 20040823
  Receipt Date: 20030901
  Transmission Date: 20050211
  Serious: Yes (Hospitalization)
  Sender: FDA-Public Use
  Company Number: 200311058JP

PATIENT
  Age: 51 Year
  Sex: Male

DRUGS (2)
  1. ALLEGRA [Suspect]
     Indication: URTICARIA
     Route: 048
     Dates: end: 20030831
  2. GASTER [Suspect]
     Route: 048
     Dates: end: 20030831

REACTIONS (1)
  - WHITE BLOOD CELL COUNT DECREASED [None]
